FAERS Safety Report 7236142-5 (Version None)
Quarter: 2011Q1

REPORT INFORMATION
  Report Type: 
  Country: None (occurrence: None)
  Receive Date: 20110120
  Receipt Date: 20110111
  Transmission Date: 20110831
  Serious: No
  Sender: FDA-Public Use
  Company Number: US-PFIZER INC-2011008985

PATIENT
  Sex: Male
  Weight: 90.703 kg

DRUGS (3)
  1. ATENOLOL [Concomitant]
  2. METFORMIN [Concomitant]
  3. ADVIL CONGESTION RELIEF [Suspect]
     Indication: NASOPHARYNGITIS
     Dosage: UNK
     Route: 048
     Dates: start: 20110109

REACTIONS (1)
  - DRUG INEFFECTIVE [None]
